FAERS Safety Report 18627652 (Version 2)
Quarter: 2021Q1

REPORT INFORMATION
  Report Type: Spontaneous
  Country: JP (occurrence: JP)
  Receive Date: 20201217
  Receipt Date: 20210129
  Transmission Date: 20210419
  Serious: Yes (Hospitalization)
  Sender: FDA-Public Use
  Company Number: JP-BAYER-2020-271642

PATIENT
  Age: 79 Year
  Sex: Male

DRUGS (17)
  1. MAGMITT [Concomitant]
     Active Substance: MAGNESIUM OXIDE
  2. DILTIAZEM HYDROCHLORIDE. [Concomitant]
     Active Substance: DILTIAZEM HYDROCHLORIDE
  3. CARNACULIN [KALLIDINOGENASE] [Concomitant]
  4. ZETIA [Concomitant]
     Active Substance: EZETIMIBE
  5. NEXIUM [Concomitant]
     Active Substance: ESOMEPRAZOLE MAGNESIUM
  6. ZOLADEX [Concomitant]
     Active Substance: GOSERELIN ACETATE
     Indication: PROSTATE CANCER
     Dosage: UNK
  7. LOCHOL [ATORVASTATIN CALCIUM] [Concomitant]
  8. BIOFERMIN [BACILLUS SUBTILIS;LACTOMIN] [Concomitant]
  9. ITOROL [Concomitant]
     Active Substance: ISOSORBIDE MONONITRATE
  10. BASEN [VOGLIBOSE] [Concomitant]
     Active Substance: VOGLIBOSE
  11. PLAVIX [Concomitant]
     Active Substance: CLOPIDOGREL BISULFATE
  12. NUBEQA [Suspect]
     Active Substance: DAROLUTAMIDE
     Indication: PROSTATE CANCER
     Dosage: DAILY DOSE 1200 MG, BID
     Route: 048
     Dates: start: 20200910, end: 20200921
  13. ACTOS [Concomitant]
     Active Substance: PIOGLITAZONE HYDROCHLORIDE
  14. TRESIBA [Concomitant]
     Active Substance: INSULIN DEGLUDEC
  15. APIDRA [Concomitant]
     Active Substance: INSULIN GLULISINE
  16. SENNOSIDE [SENNOSIDE A+B CALCIUM] [Concomitant]
     Active Substance: SENNOSIDES A AND B
     Dosage: PRN
  17. MARIZEV [Concomitant]
     Active Substance: OMARIGLIPTIN

REACTIONS (3)
  - Pyelonephritis [Recovered/Resolved]
  - Pyrexia [Recovered/Resolved]
  - Costovertebral angle tenderness [Recovered/Resolved]

NARRATIVE: CASE EVENT DATE: 20200924
